FAERS Safety Report 5399352-8 (Version None)
Quarter: 2007Q3

REPORT INFORMATION
  Report Type: 
  Country: None (occurrence: None)
  Receive Date: 20070727
  Receipt Date: 20070628
  Transmission Date: 20080115
  Serious: Yes (Death, Other)
  Sender: FDA-Public Use
  Company Number: FR-ROCHE-506758

PATIENT
  Sex: Female

DRUGS (1)
  1. XELODA [Suspect]
     Indication: DRUG USE FOR UNKNOWN INDICATION
     Route: 065

REACTIONS (7)
  - APHTHOUS STOMATITIS [None]
  - DEATH [None]
  - DIARRHOEA [None]
  - ORAL CAVITY FISTULA [None]
  - ORAL HERPES [None]
  - THERMAL BURN [None]
  - TONGUE PARALYSIS [None]
